FAERS Safety Report 6456780-7 (Version None)
Quarter: 2009Q4

REPORT INFORMATION
  Report Type: 
  Country: None (occurrence: None)
  Receive Date: 20091124
  Receipt Date: 20091124
  Transmission Date: 20100525
  Serious: Yes (Other)
  Sender: FDA-Public Use
  Company Number: None

PATIENT
  Age: 61 Year
  Sex: Female
  Weight: 86.1834 kg

DRUGS (1)
  1. SULFAMETHOXAZOLE AND TRIMETHOPRIM DOUBLE STRENGTH [Suspect]
     Indication: CELLULITIS
     Dosage: TWICE A DAY PO
     Route: 048
     Dates: start: 20090805, end: 20090808

REACTIONS (2)
  - OEDEMA PERIPHERAL [None]
  - SKIN DISORDER [None]
